FAERS Safety Report 18017298 (Version 1)
Quarter: 2020Q3

REPORT INFORMATION
  Report Type: Other
  Country: IT (occurrence: IT)
  Receive Date: 20200713
  Receipt Date: 20200713
  Transmission Date: 20201103
  Serious: Yes (Death)
  Sender: FDA-Public Use
  Company Number: IT-ROCHE-2639565

PATIENT

DRUGS (6)
  1. AZITHROMYCIN ANHYDROUS. [Concomitant]
     Active Substance: AZITHROMYCIN ANHYDROUS
  2. COBICISTAT [Concomitant]
     Active Substance: COBICISTAT
  3. HYDROXYCHLOROQUINE [Concomitant]
     Active Substance: HYDROXYCHLOROQUINE
  4. LOPINAVIR;RITONAVIR [Concomitant]
     Active Substance: LOPINAVIR\RITONAVIR
  5. DARUNAVIR [Concomitant]
     Active Substance: DARUNAVIR
  6. TOCILIZUMAB. [Suspect]
     Active Substance: TOCILIZUMAB
     Indication: COVID-19 PNEUMONIA
     Route: 058

REACTIONS (4)
  - Herpes simplex reactivation [Unknown]
  - Intentional product use issue [Unknown]
  - Off label use [Unknown]
  - Hepatic failure [Fatal]
